FAERS Safety Report 6261543-1 (Version None)
Quarter: 2009Q3

REPORT INFORMATION
  Report Type: 
  Country: None (occurrence: None)
  Receive Date: 20090707
  Receipt Date: 20090707
  Transmission Date: 20100115
  Serious: Yes (Hospitalization)
  Sender: FDA-Public Use
  Company Number: None

PATIENT
  Age: 76 Year
  Sex: Male

DRUGS (2)
  1. DIGOXIN [Suspect]
     Indication: ATRIAL FIBRILLATION
     Dosage: 0.25 MG EVERY DAY PO
     Route: 048
     Dates: start: 20080418, end: 20080722
  2. CARVEDILOL [Suspect]
     Dosage: 12.5 MG BID PO
     Route: 048
     Dates: start: 20090403

REACTIONS (5)
  - BRADYCARDIA [None]
  - CARDIOACTIVE DRUG LEVEL INCREASED [None]
  - DIZZINESS [None]
  - SYNCOPE [None]
  - THERAPEUTIC AGENT TOXICITY [None]
